FAERS Safety Report 4662419-3 (Version None)
Quarter: 2005Q2

REPORT INFORMATION
  Report Type: 
  Country: None (occurrence: None)
  Receive Date: 20050516
  Receipt Date: 20050204
  Transmission Date: 20051028
  Serious: Yes (Death, Other)
  Sender: FDA-Public Use
  Company Number: US-MERCK-0502USA00558

PATIENT
  Age: 72 Year
  Sex: Female
  Weight: 75 kg

DRUGS (12)
  1. VIOXX [Suspect]
     Indication: RHEUMATOID ARTHRITIS
     Route: 048
     Dates: start: 20000905, end: 20030429
  2. PREMARIN [Concomitant]
     Route: 065
  3. ATROVENT [Concomitant]
     Route: 055
     Dates: start: 20030123, end: 20030501
  4. PRILOSEC [Concomitant]
     Route: 048
  5. PAXIL [Concomitant]
     Route: 048
  6. SEREVENT [Concomitant]
     Route: 055
  7. XANAX [Concomitant]
     Route: 048
  8. VICODIN [Concomitant]
     Route: 048
     Dates: end: 20030429
  9. LASIX [Concomitant]
     Route: 065
     Dates: start: 20021001, end: 20030429
  10. PREDNISONE [Concomitant]
     Route: 065
  11. ALBUTEROL [Concomitant]
     Route: 055
  12. FERROUS SULFATE [Concomitant]
     Route: 065

REACTIONS (8)
  - CARDIAC DISORDER [None]
  - CARDIAC FAILURE CONGESTIVE [None]
  - CARDIO-RESPIRATORY ARREST [None]
  - CHEST PAIN [None]
  - CHRONIC OBSTRUCTIVE PULMONARY DISEASE [None]
  - DIABETES MELLITUS [None]
  - DYSPEPSIA [None]
  - MYOCARDIAL INFARCTION [None]
